FAERS Safety Report 15104792 (Version 1)
Quarter: 2018Q2

REPORT INFORMATION
  Report Type: Spontaneous
  Country: US (occurrence: US)
  Receive Date: 20180611
  Receipt Date: 20180611
  Transmission Date: 20180711
  Serious: Yes (Other)
  Sender: FDA-Public Use
  Company Number: None

PATIENT
  Age: 73 Year
  Sex: Female

DRUGS (14)
  1. DOFETILIDE, 500 UGM [Suspect]
     Active Substance: DOFETILIDE
     Indication: ATRIAL FIBRILLATION
     Route: 048
     Dates: start: 20180414
  2. ARMOUR THYRO [Concomitant]
  3. VITAMIN D [Concomitant]
     Active Substance: CHOLECALCIFEROL
  4. FUROSEMIDE. [Concomitant]
     Active Substance: FUROSEMIDE
  5. GLEEVEC [Suspect]
     Active Substance: IMATINIB MESYLATE
  6. CHLORTHALID [Concomitant]
  7. POT CL [Concomitant]
  8. ELIQUIS [Concomitant]
     Active Substance: APIXABAN
  9. SERTRALINE [Concomitant]
     Active Substance: SERTRALINE HYDROCHLORIDE
  10. MAGNESIUM-OX [Concomitant]
  11. LOSARTAN POT [Concomitant]
     Active Substance: LOSARTAN POTASSIUM
  12. AMIODARONE [Concomitant]
     Active Substance: AMIODARONE
  13. METOPROL TAR [Concomitant]
  14. ISOSORB MONO [Concomitant]
     Active Substance: ISOSORBIDE MONONITRATE

REACTIONS (1)
  - Seizure [None]

NARRATIVE: CASE EVENT DATE: 20180611
